FAERS Safety Report 4378630-5 (Version None)
Quarter: 2004Q2

REPORT INFORMATION
  Report Type: 
  Country: None (occurrence: None)
  Receive Date: 20040610
  Receipt Date: 20040601
  Transmission Date: 20050107
  Serious: Yes (Death)
  Sender: FDA-Public Use
  Company Number: 2004JP001125

PATIENT
  Age: 19 Year
  Sex: Male

DRUGS (2)
  1. PROGRAF [Suspect]
     Indication: BONE MARROW TRANSPLANT
     Dosage: 0.60 MG, INTRAVENOUS; ORAL; SEE IMAGE
     Route: 042
     Dates: start: 20031202, end: 20040422
  2. PROGRAF [Suspect]
     Indication: BONE MARROW TRANSPLANT
     Dosage: 0.60 MG, INTRAVENOUS; ORAL; SEE IMAGE
     Route: 042
     Dates: start: 20040423

REACTIONS (3)
  - GRAFT VERSUS HOST DISEASE [None]
  - HAEMORRHAGIC CEREBRAL INFARCTION [None]
  - LEUKOENCEPHALOPATHY [None]
